FAERS Safety Report 4423639-6 (Version None)
Quarter: 2004Q3

REPORT INFORMATION
  Report Type: 
  Country: None (occurrence: None)
  Receive Date: 20040805
  Receipt Date: 20040720
  Transmission Date: 20050211
  Serious: Yes (Death)
  Sender: FDA-Public Use
  Company Number: 700219

PATIENT
  Age: 79 Year
  Sex: Female

DRUGS (2)
  1. EXTRANEAL [Suspect]
     Indication: PERITONEAL DIALYSIS
     Dosage: 1 L;QD; INTRAPERITONEAL
     Route: 033
     Dates: start: 20030701
  2. DIANEAL PD-2 W/ DEXTROSE 1.5% [Concomitant]

REACTIONS (5)
  - BEDRIDDEN [None]
  - CARDIAC FAILURE [None]
  - CEREBRAL INFARCTION [None]
  - CONDITION AGGRAVATED [None]
  - HYPOVENTILATION [None]
